FAERS Safety Report 13299592 (Version 1)
Quarter: 2017Q1

REPORT INFORMATION
  Report Type: Report from Study
  Country: AU (occurrence: AU)
  Receive Date: 20170306
  Receipt Date: 20170306
  Transmission Date: 20170428
  Serious: Yes (Other)
  Sender: FDA-Public Use
  Company Number: AU-REGENERON PHARMACEUTICALS, INC.-2016-19853

PATIENT

DRUGS (1)
  1. EYLEA [Suspect]
     Active Substance: AFLIBERCEPT
     Indication: NEOVASCULAR AGE-RELATED MACULAR DEGENERATION
     Dosage: 2 MG, Q2MON
     Route: 031
     Dates: start: 20150501

REACTIONS (9)
  - Cataract [Unknown]
  - Visual impairment [Unknown]
  - Rash [Unknown]
  - Rash macular [Unknown]
  - Influenza [Recovering/Resolving]
  - Product use issue [Unknown]
  - Fatigue [Unknown]
  - Glaucoma [Unknown]
  - Blood pressure increased [Not Recovered/Not Resolved]
